FAERS Safety Report 13498284 (Version 1)
Quarter: 2017Q2

REPORT INFORMATION
  Report Type: Report from Study
  Country: None (occurrence: US)
  Receive Date: 20170429
  Receipt Date: 20170429
  Transmission Date: 20170830
  Serious: Yes (Other)
  Sender: FDA-Public Use
  Company Number: US-ABBVIE-16K-163-1638998-00

PATIENT
  Age: 21 Year
  Sex: Female

DRUGS (5)
  1. APRISO [Concomitant]
     Active Substance: MESALAMINE
     Indication: COLITIS ULCERATIVE
     Dates: end: 201607
  2. VITAMEDMD PLUS RX [Concomitant]
     Indication: VITAMIN SUPPLEMENTATION
  3. HUMIRA [Suspect]
     Active Substance: ADALIMUMAB
     Indication: CROHN^S DISEASE
     Route: 058
     Dates: start: 20160428, end: 20160712
  4. HUMIRA [Suspect]
     Active Substance: ADALIMUMAB
     Indication: COLITIS ULCERATIVE
  5. REMICADE [Concomitant]
     Active Substance: INFLIXIMAB
     Indication: COLITIS ULCERATIVE
     Dates: start: 201701

REACTIONS (18)
  - Stillbirth [Unknown]
  - Foetal placental thrombosis [Recovered/Resolved]
  - Weight decreased [Recovering/Resolving]
  - Injection site bruising [Not Recovered/Not Resolved]
  - Injection site erythema [Not Recovered/Not Resolved]
  - Injection site swelling [Not Recovered/Not Resolved]
  - Loss of consciousness [Recovered/Resolved]
  - Exposure during pregnancy [Unknown]
  - Haemoglobin decreased [Recovering/Resolving]
  - Clostridium difficile infection [Recovered/Resolved]
  - Uterine contractions during pregnancy [Not Recovered/Not Resolved]
  - Anaemia of pregnancy [Recovering/Resolving]
  - High risk pregnancy [Unknown]
  - Dehydration [Not Recovered/Not Resolved]
  - Injection site urticaria [Not Recovered/Not Resolved]
  - Pyrexia [Recovered/Resolved]
  - Diarrhoea [Recovered/Resolved]
  - Drug ineffective [Not Recovered/Not Resolved]

NARRATIVE: CASE EVENT DATE: 2016
